FAERS Safety Report 8629453 (Version 3)
Quarter: 2014Q1

REPORT INFORMATION
  Report Type: Spontaneous
  Country: US (occurrence: US)
  Receive Date: 20120622
  Receipt Date: 20140115
  Transmission Date: 20141002
  Serious: Yes (Disabling)
  Sender: FDA-Public Use
  Company Number: US-ASTRAZENECA-2012SE35464

PATIENT
  Age: 45 Year
  Sex: Female
  Weight: 47.6 kg

DRUGS (17)
  1. NEXIUM [Suspect]
     Indication: DYSPEPSIA
     Dosage: TWICE IN DAY
     Route: 048
     Dates: start: 2001, end: 2002
  2. NEXIUM [Suspect]
     Indication: NEURITIS
     Dosage: TWICE IN DAY
     Route: 048
     Dates: start: 2001, end: 2002
  3. NEXIUM [Suspect]
     Indication: TRIGEMINAL NEURALGIA
     Dosage: TWICE IN DAY
     Route: 048
     Dates: start: 2001, end: 2002
  4. NEXIUM [Suspect]
     Indication: DYSPEPSIA
     Route: 048
     Dates: start: 20010731
  5. NEXIUM [Suspect]
     Indication: NEURITIS
     Route: 048
     Dates: start: 20010731
  6. NEXIUM [Suspect]
     Indication: TRIGEMINAL NEURALGIA
     Route: 048
     Dates: start: 20010731
  7. NEXIUM [Suspect]
     Indication: DYSPEPSIA
     Route: 048
     Dates: start: 1999
  8. NEXIUM [Suspect]
     Indication: NEURITIS
     Route: 048
     Dates: start: 1999
  9. NEXIUM [Suspect]
     Indication: TRIGEMINAL NEURALGIA
     Route: 048
     Dates: start: 1999
  10. PRILOSEC [Suspect]
     Route: 048
  11. PRILOSEC [Suspect]
     Route: 048
     Dates: start: 1999
  12. ACIPHEX [Concomitant]
  13. ZANTAC [Concomitant]
  14. METHIMAZOLE [Concomitant]
     Dates: start: 20010718
  15. NEURONTIN [Concomitant]
     Dates: start: 20010718
  16. PREVIDENT [Concomitant]
  17. LEVAQUIN [Concomitant]
     Dates: start: 20020226

REACTIONS (6)
  - Scleroderma [Unknown]
  - Osteoporosis [Unknown]
  - Spinal fracture [Unknown]
  - Multiple fractures [Unknown]
  - Foot fracture [Unknown]
  - Rib fracture [Unknown]
